FAERS Safety Report 7245679-4 (Version None)
Quarter: 2011Q1

REPORT INFORMATION
  Report Type: 
  Country: None (occurrence: None)
  Receive Date: 20110126
  Receipt Date: 20110124
  Transmission Date: 20110831
  Serious: Yes (Other)
  Sender: FDA-Public Use
  Company Number: ES-ABBOTT-11P-144-0699961-00

PATIENT
  Age: 20 Year
  Sex: Female

DRUGS (2)
  1. HUMIRA [Suspect]
     Indication: CROHN'S DISEASE
     Route: 058
     Dates: start: 20080416
  2. IMUREL [Concomitant]
     Indication: CROHN'S DISEASE
     Route: 048
     Dates: start: 20080416

REACTIONS (1)
  - PSYCHOTIC DISORDER [None]
